FAERS Safety Report 6566586-6 (Version None)
Quarter: 2010Q1

REPORT INFORMATION
  Report Type: 
  Country: None (occurrence: None)
  Receive Date: 20100127
  Receipt Date: 20100118
  Transmission Date: 20100710
  Serious: Yes (Hospitalization)
  Sender: FDA-Public Use
  Company Number: 482726

PATIENT
  Age: 67 Year

DRUGS (3)
  1. OXALIPLATIN [Suspect]
     Indication: COLON CANCER METASTATIC
  2. LEUCOVORIN CALCIUM [Suspect]
     Indication: COLON CANCER METASTATIC
  3. FLUOROURACIL [Suspect]
     Indication: COLON CANCER METASTATIC

REACTIONS (4)
  - CONSTIPATION [None]
  - DIARRHOEA [None]
  - GASTRIC PERFORATION [None]
  - MEDICAL DEVICE COMPLICATION [None]
